FAERS Safety Report 9746462 (Version 1)
Quarter: 2013Q4

REPORT INFORMATION
  Report Type: Report from Study
  Country: MX (occurrence: MX)
  Receive Date: 20131211
  Receipt Date: 20131211
  Transmission Date: 20140711
  Serious: Yes (Other)
  Sender: FDA-Public Use
  Company Number: PHHY2013MX145003

PATIENT
  Age: 67 Year
  Sex: Female

DRUGS (4)
  1. CO-DIOVAN [Suspect]
     Indication: HYPERTENSION
     Dosage: 2 DF (160/12.5)MG, DAILY
     Route: 048
     Dates: start: 201006
  2. GALVUS MET [Suspect]
     Indication: DIABETES MELLITUS
     Dosage: 2 DF (850/50MG), DAILY
     Route: 048
  3. GAAP OFTENO [Concomitant]
     Dosage: 3 DRP, DAILY
     Route: 065
  4. ZANIDIP [Concomitant]
     Dosage: 1 UKN,DAILY

REACTIONS (2)
  - Glaucoma [Not Recovered/Not Resolved]
  - Epistaxis [Not Recovered/Not Resolved]
